FAERS Safety Report 5384692-9 (Version None)
Quarter: 2007Q3

REPORT INFORMATION
  Report Type: 
  Country: None (occurrence: None)
  Receive Date: 20070711
  Receipt Date: 20070629
  Transmission Date: 20080115
  Serious: Yes (Hospitalization)
  Sender: FDA-Public Use
  Company Number: US-PFIZER INC-2007047012

PATIENT
  Sex: Female
  Weight: 68 kg

DRUGS (2)
  1. SU-011,248 [Suspect]
     Indication: BREAST CANCER
     Route: 048
  2. PACLITAXEL [Suspect]
     Indication: BREAST CANCER
     Route: 042

REACTIONS (2)
  - HUMERUS FRACTURE [None]
  - SYNCOPE [None]
